FAERS Safety Report 24350715 (Version 3)
Quarter: 2024Q4

REPORT INFORMATION
  Report Type: Spontaneous
  Country: US (occurrence: US)
  Receive Date: 20240923
  Receipt Date: 20241126
  Transmission Date: 20250115
  Serious: No
  Sender: BRISTOL-MYERS SQUIBB COMPANY
  Company Number: US-BRISTOL-MYERS SQUIBB COMPANY-2024-150075

PATIENT
  Age: 75 Year
  Sex: Female

DRUGS (3)
  1. ORENCIA [Suspect]
     Active Substance: ABATACEPT
     Indication: Rheumatoid arthritis
     Route: 058
     Dates: start: 202110
  2. ORENCIA [Suspect]
     Active Substance: ABATACEPT
     Indication: Ankylosing spondylitis
     Dosage: DOSE- 125MG/ML
     Route: 058
     Dates: start: 202110
  3. ORENCIA [Suspect]
     Active Substance: ABATACEPT
     Route: 058
     Dates: start: 202110

REACTIONS (2)
  - Pain in extremity [Unknown]
  - Product dose omission issue [Unknown]
